FAERS Safety Report 21105725 (Version 2)
Quarter: 2022Q3

REPORT INFORMATION
  Report Type: Spontaneous
  Country: EE (occurrence: None)
  Receive Date: 20220720
  Receipt Date: 20220726
  Transmission Date: 20221027
  Serious: Yes (Other)
  Sender: FDA-Public Use
  Company Number: EE-ROCHE-3141315

PATIENT
  Sex: Male
  Weight: 73 kg

DRUGS (6)
  1. CYCLOPHOSPHAMIDE\DOXORUBICIN\PREDNISONE\VINCRISTINE [Suspect]
     Active Substance: CYCLOPHOSPHAMIDE\DOXORUBICIN\PREDNISONE\VINCRISTINE
     Indication: Diffuse large B-cell lymphoma
     Dosage: FOR THE 1ST LINE SYSTEMIC TREATMENT, R-CHOP
     Route: 065
     Dates: start: 20180501, end: 20180827
  2. DEXAMETHASONE [Suspect]
     Active Substance: DEXAMETHASONE
     Indication: Diffuse large B-cell lymphoma
     Dosage: FOR THE 2ND LINE SYSTEMIC TREATMENT, R-DHAP X 3, FOLLOWED BY BEAM AND AUTO-SCT
     Route: 065
     Dates: start: 20200306, end: 20200617
  3. CYTARABINE [Suspect]
     Active Substance: CYTARABINE
     Indication: Diffuse large B-cell lymphoma
     Dosage: FOR THE 2ND LINE SYSTEMIC TREATMENT, R-DHAP X 3, FOLLOWED BY BEAM AND AUTO-SCT
     Route: 065
     Dates: start: 20200306, end: 20200617
  4. CISPLATIN [Suspect]
     Active Substance: CISPLATIN
     Indication: Diffuse large B-cell lymphoma
     Dosage: FOR THE 2ND LINE SYSTEMIC TREATMENT, R-DHAP X 3, FOLLOWED BY BEAM AND AUTO-SCT
     Route: 065
     Dates: start: 20200306, end: 20200617
  5. BENDAMUSTINE [Suspect]
     Active Substance: BENDAMUSTINE
     Indication: Diffuse large B-cell lymphoma
     Dosage: FOR THE 3RD LINE SYSTEMIC TREATMENT, RITUXIMAB-BENDAMUSTINE X 5
     Route: 065
     Dates: start: 20201215, end: 20210415
  6. RITUXIMAB [Suspect]
     Active Substance: RITUXIMAB
     Indication: Diffuse large B-cell lymphoma
     Route: 065

REACTIONS (1)
  - Diffuse large B-cell lymphoma [Unknown]
